FAERS Safety Report 7337091-4 (Version None)
Quarter: 2011Q1

REPORT INFORMATION
  Report Type: 
  Country: None (occurrence: None)
  Receive Date: 20110308
  Receipt Date: 20110223
  Transmission Date: 20110831
  Serious: Yes (Hospitalization)
  Sender: FDA-Public Use
  Company Number: PHHO2009AU08313

PATIENT
  Sex: Female
  Weight: 69 kg

DRUGS (10)
  1. ROSIGLITAZONE [Concomitant]
     Indication: DIABETES MELLITUS
  2. RIVASTIGMINE [Suspect]
     Indication: DEMENTIA ALZHEIMER'S TYPE
     Dosage: UNK
     Route: 062
     Dates: start: 20090304
  3. LANTUS [Concomitant]
     Indication: TYPE 2 DIABETES MELLITUS
  4. CEFAZOLIN [Suspect]
     Indication: PNEUMONIA
     Dosage: UNK
     Route: 065
     Dates: start: 20090611, end: 20090613
  5. PHENERGAN [Suspect]
     Indication: HYPERSENSITIVITY
     Dosage: UNK
     Dates: start: 20090614, end: 20090614
  6. SYMBICORT [Concomitant]
  7. LATANOPROST [Concomitant]
     Indication: GLAUCOMA
  8. LOSARTAN POTASSIUM [Concomitant]
     Indication: HYPERTENSION
  9. GLICLAZIDE [Concomitant]
     Indication: DIABETES MELLITUS
  10. CHROMIUM PLUS [Concomitant]
     Indication: VITAMIN SUPPLEMENTATION

REACTIONS (12)
  - URINARY INCONTINENCE [None]
  - CONJUNCTIVITIS [None]
  - KNEE ARTHROPLASTY [None]
  - JOINT SWELLING [None]
  - LOWER LIMB FRACTURE [None]
  - FEMORAL NECK FRACTURE [None]
  - AGITATION [None]
  - PNEUMONIA [None]
  - OSTEOARTHRITIS [None]
  - FALL [None]
  - DRUG HYPERSENSITIVITY [None]
  - RASH [None]
